FAERS Safety Report 5907180-7 (Version None)
Quarter: 2008Q4

REPORT INFORMATION
  Report Type: 
  Country: None (occurrence: None)
  Receive Date: 20081003
  Receipt Date: 20080926
  Transmission Date: 20090506
  Serious: Yes (Other)
  Sender: FDA-Public Use
  Company Number: US-ASTRAZENECA-2008UW20534

PATIENT
  Age: 44 Year
  Sex: Female
  Weight: 95.3 kg

DRUGS (2)
  1. CRESTOR [Suspect]
     Indication: BLOOD CHOLESTEROL INCREASED
     Route: 048
  2. CYMBALTA [Concomitant]

REACTIONS (4)
  - DYSPHONIA [None]
  - FEELING ABNORMAL [None]
  - LIP SWELLING [None]
  - URTICARIA [None]
